FAERS Safety Report 20872220 (Version 2)
Quarter: 2022Q2

REPORT INFORMATION
  Report Type: Spontaneous
  Country: GR (occurrence: GR)
  Receive Date: 20220525
  Receipt Date: 20220608
  Transmission Date: 20220720
  Serious: Yes (Hospitalization, Other)
  Sender: FDA-Public Use
  Company Number: GR-BoehringerIngelheim-2022-BI-171530

PATIENT
  Age: 63 Year
  Sex: Male

DRUGS (1)
  1. EMPAGLIFLOZIN [Suspect]
     Active Substance: EMPAGLIFLOZIN
     Indication: Type 2 diabetes mellitus

REACTIONS (12)
  - Subarachnoid haemorrhage [Recovered/Resolved]
  - Acinetobacter bacteraemia [Recovered/Resolved]
  - Leukocytosis [Unknown]
  - Acute kidney injury [Unknown]
  - Metabolic acidosis [Unknown]
  - Pyelonephritis [Unknown]
  - Hydronephrosis [Unknown]
  - Bladder hypertrophy [Unknown]
  - Enterovesical fistula [Unknown]
  - Candida infection [Unknown]
  - Cystitis [Unknown]
  - Diabetic ketoacidosis [Unknown]
